FAERS Safety Report 25750274 (Version 1)
Quarter: 2025Q3

REPORT INFORMATION
  Report Type: Report from Study
  Country: US (occurrence: US)
  Receive Date: 20250902
  Receipt Date: 20250902
  Transmission Date: 20251020
  Serious: Yes (Other)
  Sender: ACADIA PHARMACEUTICALS
  Company Number: US-ACADIA PHARMACEUTICALS INC.-ACA-2025-TRF-009664

PATIENT
  Sex: Female

DRUGS (1)
  1. DAYBUE [Suspect]
     Active Substance: TROFINETIDE
     Indication: Rett syndrome
     Dosage: 40 MILLILITER, BID
     Dates: start: 2019

REACTIONS (8)
  - Pneumothorax [Not Recovered/Not Resolved]
  - Seizure [Not Recovered/Not Resolved]
  - Developmental regression [Not Recovered/Not Resolved]
  - Tracheostomy [Not Recovered/Not Resolved]
  - PCO2 increased [Not Recovered/Not Resolved]
  - Infection [Not Recovered/Not Resolved]
  - Somnolence [Not Recovered/Not Resolved]
  - Diarrhoea [Not Recovered/Not Resolved]
